FAERS Safety Report 8182177-8 (Version None)
Quarter: 2012Q1

REPORT INFORMATION
  Report Type: 
  Country: None (occurrence: None)
  Receive Date: 20120302
  Receipt Date: 20120224
  Transmission Date: 20120608
  Serious: Yes (Hospitalization)
  Sender: FDA-Public Use
  Company Number: US-ASTRAZENECA-2012SE13039

PATIENT

DRUGS (1)
  1. BRILINTA [Suspect]
     Route: 048

REACTIONS (1)
  - RESPIRATORY DEPRESSION [None]
